FAERS Safety Report 4871743-0 (Version None)
Quarter: 2006Q1

REPORT INFORMATION
  Report Type: 
  Country: None (occurrence: None)
  Receive Date: 20060104
  Receipt Date: 20050408
  Transmission Date: 20060701
  Serious: No
  Sender: FDA-Public Use
  Company Number: US-BRISTOL-MYERS SQUIBB COMPANY-12927083

PATIENT
  Sex: Female

DRUGS (1)
  1. DESYREL [Suspect]
     Dosage: DURATION OF THERAPY:  MANY YEARS

REACTIONS (2)
  - DRUG ADMINISTRATION ERROR [None]
  - IMPAIRED DRIVING ABILITY [None]
